FAERS Safety Report 8205343-1 (Version None)
Quarter: 2012Q1

REPORT INFORMATION
  Report Type: 
  Country: None (occurrence: None)
  Receive Date: 20120313
  Receipt Date: 20120302
  Transmission Date: 20120608
  Serious: Yes (Other)
  Sender: FDA-Public Use
  Company Number: CA-JNJFOC-20120301787

PATIENT
  Sex: Male
  Weight: 95.4 kg

DRUGS (3)
  1. REMICADE [Suspect]
     Indication: CROHN'S DISEASE
     Route: 042
     Dates: start: 20100101
  2. IMURAN [Concomitant]
     Route: 065
  3. PENTASA [Concomitant]
     Route: 065

REACTIONS (1)
  - LIMB CRUSHING INJURY [None]
